FAERS Safety Report 24086354 (Version 2)
Quarter: 2024Q3

REPORT INFORMATION
  Report Type: Spontaneous
  Country: CN (occurrence: CN)
  Receive Date: 20240712
  Receipt Date: 20240724
  Transmission Date: 20241016
  Serious: Yes (Hospitalization)
  Sender: EISAI
  Company Number: CN-Eisai-EC-2024-169559

PATIENT
  Age: 62 Year
  Sex: Female
  Weight: 75 kg

DRUGS (1)
  1. LECANEMAB [Suspect]
     Active Substance: LECANEMAB
     Indication: Dementia Alzheimer^s type
     Dosage: 74 (UNITS UNKNOWN)
     Route: 041
     Dates: start: 20240628, end: 202407

REACTIONS (3)
  - Gastroenteritis [Unknown]
  - Vomiting [Recovered/Resolved]
  - Abdominal pain [Recovered/Resolved]

NARRATIVE: CASE EVENT DATE: 20240701
